FAERS Safety Report 17183555 (Version 1)
Quarter: 2019Q4

REPORT INFORMATION
  Report Type: Other
  Country: CA (occurrence: CA)
  Receive Date: 20191220
  Receipt Date: 20191220
  Transmission Date: 20200122
  Serious: Yes (Other)
  Sender: FDA-Public Use
  Company Number: CA-APOTEX-2019AP026055

PATIENT
  Sex: Male

DRUGS (2)
  1. TRAMADOL. [Suspect]
     Active Substance: TRAMADOL
     Indication: MUSCULOSKELETAL PAIN
     Dosage: 60 MG, UNK
     Route: 065
  2. TRAMADOL. [Suspect]
     Active Substance: TRAMADOL
     Indication: PRODUCT USED FOR UNKNOWN INDICATION
     Dosage: 150 MG, UNK
     Route: 065

REACTIONS (8)
  - Irritability [Unknown]
  - Impaired work ability [Unknown]
  - Insomnia [Unknown]
  - Back pain [Unknown]
  - Fatigue [Unknown]
  - Dependence [Unknown]
  - Drug withdrawal syndrome [Unknown]
  - Tremor [Unknown]
